FAERS Safety Report 20106296 (Version 3)
Quarter: 2021Q4

REPORT INFORMATION
  Report Type: Other
  Country: US (occurrence: None)
  Receive Date: 20211124
  Receipt Date: 20211227
  Transmission Date: 20220303
  Serious: Yes (Hospitalization, Other)
  Sender: FDA-Public Use
  Company Number: US-ROCHE-2920836

PATIENT
  Age: 57 Year
  Sex: Male
  Weight: 74.910 kg

DRUGS (4)
  1. OCREVUS [Suspect]
     Active Substance: OCRELIZUMAB
     Indication: Primary progressive multiple sclerosis
     Dosage: DATE OF TREATMENT: 18/JUN/2021, 30/DEC/2020, 24/JUN/2020, 24/DEC/2019, 01/MAY/2019, 09/OCT/2018, 16/
     Route: 042
     Dates: start: 201803
  2. OCREVUS [Suspect]
     Active Substance: OCRELIZUMAB
     Route: 042
     Dates: start: 20171016
  3. ASPIRIN [Concomitant]
     Active Substance: ASPIRIN
     Route: 048
  4. COPAXONE [Concomitant]
     Active Substance: GLATIRAMER ACETATE

REACTIONS (5)
  - Femur fracture [Not Recovered/Not Resolved]
  - Fall [Unknown]
  - Bone demineralisation [Unknown]
  - Underweight [Unknown]
  - Lower limb fracture [Not Recovered/Not Resolved]

NARRATIVE: CASE EVENT DATE: 20210901
